FAERS Safety Report 6047159-0 (Version None)
Quarter: 2009Q1

REPORT INFORMATION
  Report Type: 
  Country: None (occurrence: None)
  Receive Date: 20090122
  Receipt Date: 20090115
  Transmission Date: 20090719
  Serious: Yes (Hospitalization)
  Sender: FDA-Public Use
  Company Number: GB-ASTRAZENECA-2009GB00279

PATIENT
  Age: 80 Year
  Sex: Male

DRUGS (3)
  1. OMEPRAZOLE [Suspect]
     Indication: PEPTIC ULCER
     Dosage: 10 MG
     Route: 048
  2. AMOXICILLIN [Concomitant]
     Dosage: 500 MG
     Route: 048
  3. CLARITHROMYCIN [Concomitant]
     Dosage: 500 MG
     Route: 048

REACTIONS (4)
  - CONFUSIONAL STATE [None]
  - CONVULSION [None]
  - DYSPHAGIA [None]
  - HALLUCINATION [None]
